FAERS Safety Report 17227997 (Version 1)
Quarter: 2020Q1

REPORT INFORMATION
  Report Type: Spontaneous
  Country: US (occurrence: US)
  Receive Date: 20200103
  Receipt Date: 20200103
  Transmission Date: 20200409
  Serious: Yes (Life-Threatening, Hospitalization, Other)
  Sender: FDA-Public Use
  Company Number: US-PHARMACEUTICS INTERNATIONAL, INC.-2078460

PATIENT
  Age: 34 Year
  Sex: Female

DRUGS (3)
  1. LEVOTHYROXINE. [Concomitant]
     Active Substance: LEVOTHYROXINE
     Route: 048
  2. LEVOCORTISONE [Concomitant]
     Route: 048
  3. HYDROCORTISONE. [Suspect]
     Active Substance: HYDROCORTISONE
     Indication: ADDISON^S DISEASE
     Route: 048
     Dates: start: 2012, end: 20191218

REACTIONS (3)
  - Anaphylactic reaction [Recovering/Resolving]
  - Vision blurred [Not Recovered/Not Resolved]
  - Mental impairment [Recovering/Resolving]

NARRATIVE: CASE EVENT DATE: 20191218
